FAERS Safety Report 17343463 (Version 1)
Quarter: 2020Q1

REPORT INFORMATION
  Report Type: Spontaneous
  Country: US (occurrence: US)
  Receive Date: 20200129
  Receipt Date: 20200129
  Transmission Date: 20200409
  Serious: No
  Sender: FDA-Public Use
  Company Number: US-ALLERGAN-1937819US

PATIENT
  Age: 60 Year

DRUGS (4)
  1. BOTOX [Suspect]
     Active Substance: ONABOTULINUMTOXINA
     Dosage: 190 UNITS, SINGLE
     Route: 030
     Dates: start: 20190809, end: 20190809
  2. BOTOX [Suspect]
     Active Substance: ONABOTULINUMTOXINA
     Dosage: 155 UNITS, SINGLE
     Route: 030
     Dates: start: 20190517, end: 20190517
  3. BOTOX [Suspect]
     Active Substance: ONABOTULINUMTOXINA
     Indication: MIGRAINE
     Dosage: 190 UNITS, SINGLE
     Route: 030
     Dates: start: 20190809, end: 20190809
  4. BOTOX [Suspect]
     Active Substance: ONABOTULINUMTOXINA
     Dosage: 155 UNITS, SINGLE
     Route: 030
     Dates: start: 20190517, end: 20190517

REACTIONS (2)
  - Influenza like illness [Unknown]
  - Diarrhoea [Unknown]

NARRATIVE: CASE EVENT DATE: 20190517
